FAERS Safety Report 10234275 (Version 1)
Quarter: 2014Q2

REPORT INFORMATION
  Report Type: Spontaneous
  Country: SE (occurrence: SE)
  Receive Date: 20140612
  Receipt Date: 20140612
  Transmission Date: 20141212
  Serious: Yes (Other)
  Sender: FDA-Public Use
  Company Number: SE-PFIZER INC-2014155368

PATIENT
  Age: 71 Year
  Sex: Female

DRUGS (2)
  1. SALAZOPYRIN EN [Suspect]
  2. HUMIRA [Suspect]
     Indication: PSORIASIS
     Dosage: 5 INJECTIONS

REACTIONS (5)
  - Rash [Recovering/Resolving]
  - Swollen tongue [Recovering/Resolving]
  - Pharyngeal oedema [Recovering/Resolving]
  - Dysphonia [Not Recovered/Not Resolved]
  - Oropharyngeal pain [Not Recovered/Not Resolved]
